FAERS Safety Report 19817331 (Version 1)
Quarter: 2021Q3

REPORT INFORMATION
  Report Type: Spontaneous
  Country: US (occurrence: US)
  Receive Date: 20210910
  Receipt Date: 20210910
  Transmission Date: 20211014
  Serious: No
  Sender: FDA-Public Use
  Company Number: US-PAIPHARMA-2020-US-023345

PATIENT
  Age: 67 Year
  Sex: Male
  Weight: 117.94 kg

DRUGS (14)
  1. POTASSIUM [Concomitant]
     Active Substance: POTASSIUM
  2. PRASUGREL. [Concomitant]
     Active Substance: PRASUGREL
  3. MAGNESIUM [Concomitant]
     Active Substance: MAGNESIUM
  4. PRILOSEC [Concomitant]
     Active Substance: OMEPRAZOLE MAGNESIUM
  5. LACTULOSE SOLUTION USP, AF [Suspect]
     Active Substance: LACTULOSE
     Indication: HEPATIC ENCEPHALOPATHY
     Dosage: 30 ML BID
     Route: 048
     Dates: start: 202002, end: 202005
  6. MULTI?VITAMIN [Concomitant]
     Active Substance: .ALPHA.-TOCOPHEROL ACETATE, DL-\ASCORBIC ACID\CYANOCOBALAMIN\FLUORIDE ION\FOLIC ACID\NIACIN\PYRIDOXINE\RIBOFLAVIN\THIAMINE\VITAMIN A\VITAMIN D
  7. VITAMIN C [Concomitant]
     Active Substance: ASCORBIC ACID
  8. ATENOLOL. [Concomitant]
     Active Substance: ATENOLOL
  9. ALBUTEROL. [Concomitant]
     Active Substance: ALBUTEROL
  10. VITAMIN D3 [Concomitant]
     Active Substance: CHOLECALCIFEROL
  11. VITAMIN E [Concomitant]
     Active Substance: .ALPHA.-TOCOPHEROL
  12. CONSTULOSE [Suspect]
     Active Substance: LACTULOSE
     Indication: HEPATIC ENCEPHALOPATHY
     Dates: start: 202005
  13. CHLOROTHIAZIDE. [Concomitant]
     Active Substance: CHLOROTHIAZIDE
  14. MILK THISTLE [Concomitant]
     Active Substance: DIETARY SUPPLEMENT\HERBALS\MILK THISTLE

REACTIONS (5)
  - Abdominal distension [Not Recovered/Not Resolved]
  - Abdominal discomfort [Not Recovered/Not Resolved]
  - Flatulence [Not Recovered/Not Resolved]
  - Diarrhoea [Not Recovered/Not Resolved]
  - Abdominal pain [Not Recovered/Not Resolved]

NARRATIVE: CASE EVENT DATE: 202002
